FAERS Safety Report 24238279 (Version 2)
Quarter: 2024Q3

REPORT INFORMATION
  Report Type: Spontaneous
  Country: US (occurrence: US)
  Receive Date: 20240822
  Receipt Date: 20240903
  Transmission Date: 20241016
  Serious: Yes (Other)
  Sender: JAZZ
  Company Number: US-JAZZ PHARMACEUTICALS-2024-US-013057

PATIENT
  Age: 30 Year
  Sex: Female
  Weight: 35.5 kg

DRUGS (1)
  1. XYREM [Suspect]
     Active Substance: SODIUM OXYBATE
     Indication: Product used for unknown indication
     Dosage: 4.5 GRAM, BID

REACTIONS (3)
  - Depressed level of consciousness [Recovered/Resolved]
  - Extra dose administered [Unknown]
  - Product dose omission issue [Unknown]
